FAERS Safety Report 15191988 (Version 2)
Quarter: 2018Q4

REPORT INFORMATION
  Report Type: Spontaneous
  Country: US (occurrence: US)
  Receive Date: 20180724
  Receipt Date: 20180806
  Transmission Date: 20190204
  Serious: Yes (Hospitalization)
  Sender: FDA-Public Use
  Company Number: US-PFIZER INC-2018291747

PATIENT
  Age: 56 Year
  Sex: Female

DRUGS (1)
  1. AMPICILLIN SODIUM/SULBACTAM SODIUM [Suspect]
     Active Substance: AMPICILLIN SODIUM\SULBACTAM SODIUM
     Indication: PASTEURELLA INFECTION
     Dosage: UNK
     Route: 042

REACTIONS (3)
  - Respiratory distress [Recovering/Resolving]
  - Drug ineffective [Recovering/Resolving]
  - Sepsis [Recovering/Resolving]
